FAERS Safety Report 5347692-0 (Version None)
Quarter: 2007Q2

REPORT INFORMATION
  Report Type: 
  Country: None (occurrence: None)
  Receive Date: 20070508
  Receipt Date: 20060713
  Transmission Date: 20071010
  Serious: Yes (Other)
  Sender: FDA-Public Use
  Company Number: 234445K06USA

PATIENT
  Age: 51 Year
  Sex: Female

DRUGS (5)
  1. REBIF [Suspect]
     Indication: MULTIPLE SCLEROSIS
     Dosage: SEE IMAGE
     Route: 058
     Dates: start: 20060403, end: 20060701
  2. REBIF [Suspect]
     Indication: MULTIPLE SCLEROSIS
     Dosage: SEE IMAGE
     Route: 058
     Dates: start: 20060701
  3. BUSPAR [Concomitant]
  4. TOPROL-XL (METOPROLOL SUCINNATE) [Concomitant]
  5. LEXAPRO [Concomitant]

REACTIONS (8)
  - ANXIETY [None]
  - HEPATITIS [None]
  - HERPES ZOSTER [None]
  - INJECTION SITE ERYTHEMA [None]
  - JAUNDICE [None]
  - MOOD ALTERED [None]
  - PSYCHOTIC DISORDER [None]
  - URINARY INCONTINENCE [None]
